FAERS Safety Report 7437765-0 (Version None)
Quarter: 2011Q2

REPORT INFORMATION
  Report Type: 
  Country: None (occurrence: None)
  Receive Date: 20110426
  Receipt Date: 20110419
  Transmission Date: 20111010
  Serious: Yes (Hospitalization)
  Sender: FDA-Public Use
  Company Number: FR-PFIZER INC-2011084985

PATIENT
  Age: 85 Year
  Sex: Female

DRUGS (7)
  1. DIFFU K [Concomitant]
     Dosage: UNK
     Route: 048
     Dates: start: 20110323
  2. SOLU-MEDROL [Concomitant]
     Dosage: UNK
     Dates: start: 20110323
  3. AUGMENTIN [Concomitant]
     Dosage: 1 G, 3X/DAY
     Dates: start: 20110323
  4. LYRICA [Suspect]
     Indication: NEUROPATHY PERIPHERAL
     Dosage: 75 MG, 2X/DAY
     Route: 048
     Dates: start: 20110315, end: 20110324
  5. CELLCEPT [Concomitant]
     Dosage: 500MG PER DAY
     Route: 048
     Dates: start: 20110324
  6. NEXIUM [Concomitant]
     Dosage: 40 MG, 1X/DAY
     Route: 048
  7. ASPIRIN [Concomitant]
     Dosage: 75 MG, 1X/DAY
     Route: 048

REACTIONS (2)
  - FACIAL PAIN [None]
  - BLINDNESS [None]
